FAERS Safety Report 23008078 (Version 4)
Quarter: 2024Q1

REPORT INFORMATION
  Report Type: Report from Study
  Country: US (occurrence: US)
  Receive Date: 20230929
  Receipt Date: 20240227
  Transmission Date: 20240410
  Serious: Yes (Hospitalization, Other)
  Sender: FDA-Public Use
  Company Number: US-ABBVIE-5408071

PATIENT
  Age: 73 Year
  Sex: Female

DRUGS (3)
  1. HUMIRA [Suspect]
     Active Substance: ADALIMUMAB
     Indication: Rheumatoid arthritis
     Dosage: CITRATE FREE ?FORM STRENGTH:40 MILLIGRAM
     Route: 058
     Dates: start: 20180914, end: 20230906
  2. HUMIRA [Suspect]
     Active Substance: ADALIMUMAB
     Indication: Rheumatoid arthritis
     Dosage: CITRATE FREE, ?FORM STRENGTH:40 MILLIGRAMS
     Route: 058
     Dates: start: 20100114
  3. HUMIRA [Suspect]
     Active Substance: ADALIMUMAB
     Route: 058

REACTIONS (17)
  - Lower limb fracture [Recovering/Resolving]
  - Arthralgia [Recovering/Resolving]
  - Pain [Not Recovered/Not Resolved]
  - Inappropriate schedule of product administration [Unknown]
  - Nasopharyngitis [Recovering/Resolving]
  - Headache [Unknown]
  - Foot fracture [Recovering/Resolving]
  - Rib fracture [Recovering/Resolving]
  - Fall [Recovering/Resolving]
  - Renal disorder [Unknown]
  - Ankle fracture [Recovering/Resolving]
  - Gait disturbance [Recovering/Resolving]
  - Knee arthroplasty [Unknown]
  - Spinal fracture [Recovering/Resolving]
  - Vision blurred [Unknown]
  - Nausea [Unknown]
  - Extrasystoles [Unknown]

NARRATIVE: CASE EVENT DATE: 20230615
